FAERS Safety Report 16758835 (Version 3)
Quarter: 2019Q4

REPORT INFORMATION
  Report Type: Spontaneous
  Country: US (occurrence: US)
  Receive Date: 20190830
  Receipt Date: 20191206
  Transmission Date: 20200122
  Serious: Yes (Other)
  Sender: FDA-Public Use
  Company Number: US-BAYER-2019-159841

PATIENT
  Age: 30 Year
  Sex: Female
  Weight: 78.96 kg

DRUGS (2)
  1. MIRENA [Suspect]
     Active Substance: LEVONORGESTREL
     Indication: CONTRACEPTION
  2. MIRENA [Suspect]
     Active Substance: LEVONORGESTREL
     Indication: CONTRACEPTION
     Dosage: 20 MCG/24HR, CONT
     Route: 015
     Dates: start: 20190808, end: 20190828

REACTIONS (4)
  - Embedded device [Recovered/Resolved]
  - Device malfunction [None]
  - Device difficult to use [None]
  - Pelvic fluid collection [None]

NARRATIVE: CASE EVENT DATE: 20190808
